FAERS Safety Report 13513311 (Version 1)
Quarter: 2017Q2

REPORT INFORMATION
  Report Type: Spontaneous
  Country: CN (occurrence: CN)
  Receive Date: 20170504
  Receipt Date: 20170504
  Transmission Date: 20170830
  Serious: Yes (Other)
  Sender: FDA-Public Use
  Company Number: CN-BAYER-2017-081524

PATIENT
  Sex: Male

DRUGS (2)
  1. GLUCOBAY [Suspect]
     Active Substance: ACARBOSE
     Dosage: 50 MG, BID
     Dates: start: 2009
  2. NOVONORM [Concomitant]
     Active Substance: REPAGLINIDE
     Dosage: UNK

REACTIONS (3)
  - Blood glucose increased [None]
  - Diabetes mellitus inadequate control [None]
  - Product use issue [None]

NARRATIVE: CASE EVENT DATE: 2017
